FAERS Safety Report 25120251 (Version 1)
Quarter: 2025Q1

REPORT INFORMATION
  Report Type: Spontaneous
  Country: US (occurrence: None)
  Receive Date: 20250325
  Receipt Date: 20250325
  Transmission Date: 20250409
  Serious: Yes (Hospitalization)
  Sender: FDA-CTU
  Company Number: None

PATIENT
  Age: 60 Year
  Sex: Female
  Weight: 81.1 kg

DRUGS (6)
  1. IBRANCE [Suspect]
     Active Substance: PALBOCICLIB
     Indication: Breast cancer female
     Dosage: FREQUENCY : DAILY;?
     Route: 048
     Dates: start: 20250309
  2. BUPROPION [Concomitant]
     Active Substance: BUPROPION
  3. LETROZOLE [Concomitant]
     Active Substance: LETROZOLE
  4. OXYCODONE [Concomitant]
     Active Substance: OXYCODONE
  5. ROSUVASTATIN [Concomitant]
     Active Substance: ROSUVASTATIN
  6. WEGOVY [Concomitant]
     Active Substance: SEMAGLUTIDE

REACTIONS (2)
  - Ventricular tachycardia [None]
  - Therapy interrupted [None]

NARRATIVE: CASE EVENT DATE: 20250322
